FAERS Safety Report 23323046 (Version 1)
Quarter: 2023Q4

REPORT INFORMATION
  Report Type: Spontaneous
  Country: US (occurrence: None)
  Receive Date: 20231220
  Receipt Date: 20231220
  Transmission Date: 20240110
  Serious: No
  Sender: FDA-Public Use
  Company Number: US-ROCHE-3221740

PATIENT
  Age: 9 Year
  Sex: Male

DRUGS (1)
  1. RITUXAN [Suspect]
     Active Substance: RITUXIMAB
     Indication: Immune thrombocytopenia
     Dosage: ONLY MIXED A 200 MG DOSE BECAUSE OF A SITE REACTION ON FIRST DOSE
     Route: 065
     Dates: start: 20221109

REACTIONS (3)
  - Influenza [Not Recovered/Not Resolved]
  - Injection site reaction [Recovered/Resolved]
  - Off label use [Unknown]

NARRATIVE: CASE EVENT DATE: 20221109
